FAERS Safety Report 24668776 (Version 1)
Quarter: 2024Q4

REPORT INFORMATION
  Report Type: Spontaneous
  Country: CN (occurrence: CN)
  Receive Date: 20241127
  Receipt Date: 20241127
  Transmission Date: 20250115
  Serious: Yes (Death, Hospitalization, Other)
  Sender: RANBAXY
  Company Number: CN-SUN PHARMACEUTICAL INDUSTRIES LTD-2024R1-475467

PATIENT
  Age: 71 Year
  Sex: Male

DRUGS (5)
  1. ABIRATERONE [Suspect]
     Active Substance: ABIRATERONE\ABIRATERONE ACETATE
     Indication: Adenocarcinoma
     Dosage: 1000 MILLIGRAM, DAILY
     Route: 048
  2. DOCETAXEL [Suspect]
     Active Substance: DOCETAXEL
     Indication: Adenocarcinoma
     Dosage: 120 MILLIGRAM
     Route: 042
  3. PREDNISONE [Suspect]
     Active Substance: PREDNISONE
     Indication: Adenocarcinoma
     Dosage: 5 MILLIGRAM, BID
     Route: 048
  4. RIVAROXABAN [Suspect]
     Active Substance: RIVAROXABAN
     Indication: Adenocarcinoma
     Dosage: 20 MILLIGRAM, OD
     Route: 048
  5. GOSERELIN [Suspect]
     Active Substance: GOSERELIN
     Indication: Adenocarcinoma
     Dosage: 10.8 MILLIGRAM (ONCE EVERY 12 WEEKS)
     Route: 058

REACTIONS (5)
  - Inferior vena cava syndrome [Fatal]
  - Disease progression [Fatal]
  - Circulatory collapse [Fatal]
  - Respiratory tract infection [Fatal]
  - Cardiac failure [Fatal]
